FAERS Safety Report 13728189 (Version 7)
Quarter: 2018Q3

REPORT INFORMATION
  Report Type: Spontaneous
  Country: US (occurrence: US)
  Receive Date: 20170707
  Receipt Date: 20180809
  Transmission Date: 20181010
  Serious: Yes (Other)
  Sender: FDA-Public Use
  Company Number: US-AMGEN-USASP2017100169

PATIENT
  Age: 52 Year
  Sex: Female

DRUGS (4)
  1. KEVZARA [Suspect]
     Active Substance: SARILUMAB
     Indication: RHEUMATOID ARTHRITIS
     Dosage: UNK
     Route: 065
  2. XELJANZ XR [Concomitant]
     Active Substance: TOFACITINIB CITRATE
     Dosage: 11 MG, QD
     Route: 048
  3. HUMIRA [Suspect]
     Active Substance: ADALIMUMAB
     Indication: RHEUMATOID ARTHRITIS
     Dosage: UNK
     Route: 065
  4. ENBREL [Suspect]
     Active Substance: ETANERCEPT
     Indication: RHEUMATOID ARTHRITIS
     Dosage: UNK
     Route: 065

REACTIONS (12)
  - Musculoskeletal stiffness [Unknown]
  - Malaise [Unknown]
  - Joint swelling [Unknown]
  - Anxiety [Unknown]
  - Knee operation [Unknown]
  - Depression [Unknown]
  - Sleep disorder [Unknown]
  - Memory impairment [Unknown]
  - Drug ineffective [Unknown]
  - Arthralgia [Unknown]
  - Fatigue [Unknown]
  - Unevaluable event [Unknown]
